FAERS Safety Report 7650179-3 (Version None)
Quarter: 2011Q3

REPORT INFORMATION
  Report Type: 
  Country: None (occurrence: None)
  Receive Date: 20110802
  Receipt Date: 20110727
  Transmission Date: 20111222
  Serious: Yes (Death, Hospitalization)
  Sender: FDA-Public Use
  Company Number: FR-ELI_LILLY_AND_COMPANY-FR201107008066

PATIENT
  Sex: Male

DRUGS (6)
  1. ZOLPIDEM [Concomitant]
     Dosage: UNK
     Dates: start: 20081214
  2. OXYCODONE HCL [Concomitant]
     Dosage: UNK
     Dates: start: 20081214
  3. GEMCITABINE HYDROCHLORIDE [Suspect]
     Indication: NON-SMALL CELL LUNG CANCER
     Dosage: UNK, 2X EVERY THREE WEEKS
     Route: 042
     Dates: start: 20081202, end: 20081209
  4. MYOLASTAN [Concomitant]
     Dosage: UNK
     Dates: start: 20081214
  5. OXAZEPAM [Concomitant]
     Dosage: UNK
     Dates: start: 20081214
  6. CARBOPLATIN [Suspect]
     Indication: NON-SMALL CELL LUNG CANCER
     Dosage: 400 MG, PER 3 WEEKS
     Route: 042
     Dates: start: 20081202, end: 20081202

REACTIONS (4)
  - INFECTION [None]
  - CEREBROVASCULAR ACCIDENT [None]
  - ACUTE RESPIRATORY FAILURE [None]
  - BONE MARROW FAILURE [None]
